FAERS Safety Report 7133438-2 (Version None)
Quarter: 2010Q4

REPORT INFORMATION
  Report Type: 
  Country: None (occurrence: None)
  Receive Date: 20101202
  Receipt Date: 20101201
  Transmission Date: 20110411
  Serious: Yes (Life-Threatening, Hospitalization, Other)
  Sender: FDA-Public Use
  Company Number: PHHO2010US17490

PATIENT
  Sex: Female
  Weight: 68.027 kg

DRUGS (9)
  1. AFINITOR [Suspect]
     Indication: RENAL CELL CARCINOMA
     Dosage: 35MG/WEEK
     Route: 048
     Dates: start: 20100916, end: 20101110
  2. COMPARATOR SORAFENIB [Suspect]
     Indication: RENAL CELL CARCINOMA
     Dosage: 400 MG, QD
     Route: 048
     Dates: start: 20100916, end: 20101110
  3. LOVENOX [Suspect]
  4. GLYBURIDE [Concomitant]
  5. SAXAGLIPTIN [Concomitant]
  6. HYDROCHLOROTHIAZIDE [Concomitant]
  7. HYDROCODONE [Concomitant]
  8. ALENDRONIC ACID [Concomitant]
  9. LIPITOR [Concomitant]

REACTIONS (14)
  - ABDOMINAL PAIN [None]
  - ATRIOVENTRICULAR BLOCK COMPLETE [None]
  - CARDIAC ARREST [None]
  - DIARRHOEA [None]
  - DIZZINESS [None]
  - ENDOTRACHEAL INTUBATION [None]
  - HYPOPHOSPHATAEMIA [None]
  - LUNG INFILTRATION [None]
  - MENTAL STATUS CHANGES [None]
  - NAUSEA [None]
  - PERITONEAL HAEMORRHAGE [None]
  - PLEURAL EFFUSION [None]
  - RESPIRATORY FAILURE [None]
  - SHOCK [None]
